FAERS Safety Report 4721505-X (Version None)
Quarter: 2005Q3

REPORT INFORMATION
  Report Type: 
  Country: None (occurrence: None)
  Receive Date: 20050721
  Receipt Date: 20041022
  Transmission Date: 20060218
  Serious: No
  Sender: FDA-Public Use
  Company Number: US-BRISTOL-MYERS SQUIBB COMPANY-12742342

PATIENT
  Age: 56 Year
  Sex: Female
  Weight: 64 kg

DRUGS (4)
  1. COUMADIN [Suspect]
     Indication: CARDIAC PACEMAKER INSERTION
     Route: 048
     Dates: start: 20040601
  2. SYNTHROID [Concomitant]
  3. PREMARIN [Concomitant]
  4. ALTACE [Concomitant]

REACTIONS (1)
  - HOT FLUSH [None]
